FAERS Safety Report 5256205-3 (Version None)
Quarter: 2007Q1

REPORT INFORMATION
  Report Type: 
  Country: None (occurrence: None)
  Receive Date: 20070306
  Receipt Date: 20070221
  Transmission Date: 20070707
  Serious: Yes (Other)
  Sender: FDA-Public Use
  Company Number: PHBS2007BE03233

PATIENT
  Age: 42 Year
  Sex: Female
  Weight: 80 kg

DRUGS (3)
  1. TRILEPTAL [Suspect]
     Indication: GRAND MAL CONVULSION
     Dosage: UNK, UNK
     Dates: start: 20040101
  2. TRILEPTAL [Suspect]
     Dosage: 900 MG/DAY, QID
  3. TRILEPTAL [Suspect]
     Dosage: 150 MG, UNK
     Dates: end: 20070201

REACTIONS (5)
  - MALAISE [None]
  - NAUSEA [None]
  - ORTHOSTATIC HYPOTENSION [None]
  - PALLOR [None]
  - SYNCOPE VASOVAGAL [None]
